FAERS Safety Report 6702872-4 (Version None)
Quarter: 2010Q2

REPORT INFORMATION
  Report Type: 
  Country: None (occurrence: None)
  Receive Date: 20100429
  Receipt Date: 20100419
  Transmission Date: 20101027
  Serious: Yes (Hospitalization, Other)
  Sender: FDA-Public Use
  Company Number: CA-ABBOTT-10P-028-0637926-00

PATIENT
  Sex: Female
  Weight: 52.21 kg

DRUGS (10)
  1. HUMIRA [Suspect]
     Indication: CROHN'S DISEASE
     Dosage: 160 MG AT WEEK 0
     Route: 058
     Dates: start: 20100315
  2. HUMIRA [Suspect]
     Dosage: 80 MG AT WEEK 2
  3. HUMIRA [Suspect]
  4. IMURAN [Concomitant]
     Indication: DRUG USE FOR UNKNOWN INDICATION
     Route: 048
  5. PREDNISONE [Concomitant]
     Indication: DRUG USE FOR UNKNOWN INDICATION
     Route: 048
  6. MICRO-K [Concomitant]
     Indication: DRUG USE FOR UNKNOWN INDICATION
     Dosage: 6 TABS QD
  7. PREVACID [Concomitant]
     Indication: GASTROOESOPHAGEAL REFLUX DISEASE
     Dosage: 1 CAP QD
  8. MAGNESIUM [Concomitant]
     Indication: DRUG USE FOR UNKNOWN INDICATION
     Dosage: 1 CAP QD
  9. SODIUM CARBONATE [Concomitant]
     Indication: DRUG USE FOR UNKNOWN INDICATION
     Dosage: 2 TABS BID
  10. BUSCOPAN [Concomitant]
     Indication: GASTRIC DISORDER
     Dosage: 4 TABS PRN

REACTIONS (6)
  - ASTHENIA [None]
  - CONDITION AGGRAVATED [None]
  - DEHYDRATION [None]
  - DIARRHOEA [None]
  - FATIGUE [None]
  - FEELING ABNORMAL [None]
